FAERS Safety Report 6883092-X (Version None)
Quarter: 2010Q3

REPORT INFORMATION
  Report Type: 
  Country: None (occurrence: None)
  Receive Date: 20100729
  Receipt Date: 20100722
  Transmission Date: 20110219
  Serious: Yes (Hospitalization)
  Sender: FDA-Public Use
  Company Number: US-SANOFI-AVENTIS-2010SA025046

PATIENT
  Age: 84 Year
  Sex: Female
  Weight: 86 kg

DRUGS (14)
  1. OPTICLICK [Suspect]
     Indication: TYPE 2 DIABETES MELLITUS
     Dates: start: 20060116
  2. LANTUS [Suspect]
     Indication: TYPE 2 DIABETES MELLITUS
     Dosage: DOSE:30 UNIT(S)
     Route: 058
     Dates: start: 20060104
  3. GLYBURIDE [Concomitant]
  4. METFORMIN HCL [Concomitant]
  5. SYNTHROID [Concomitant]
  6. SIMVASTATIN [Concomitant]
     Indication: BLOOD PRESSURE
  7. ASPIRIN [Concomitant]
  8. METOPROLOL TARTRATE [Concomitant]
     Indication: BLOOD PRESSURE
  9. METOPROLOL TARTRATE [Concomitant]
  10. LISINOPRIL [Concomitant]
     Indication: BLOOD PRESSURE
  11. LISINOPRIL [Concomitant]
  12. ALENDRONATE SODIUM [Concomitant]
     Indication: BONE DISORDER
  13. CALTRATE [Concomitant]
  14. VITAMIN B-12 [Concomitant]

REACTIONS (5)
  - AORTIC ANEURYSM [None]
  - BLOOD GLUCOSE INCREASED [None]
  - INCISIONAL HERNIA [None]
  - KIDNEY INFECTION [None]
  - PRODUCT QUALITY ISSUE [None]
